FAERS Safety Report 7104418-8 (Version None)
Quarter: 2010Q4

REPORT INFORMATION
  Report Type: 
  Country: None (occurrence: None)
  Receive Date: 20101116
  Receipt Date: 20101028
  Transmission Date: 20110411
  Serious: Yes (Life-Threatening, Hospitalization)
  Sender: FDA-Public Use
  Company Number: NL-AMGEN-NLDSP2010002635

PATIENT

DRUGS (4)
  1. ENBREL [Suspect]
     Indication: PSORIASIS
     Dosage: 50 MG, QWK
     Dates: start: 20081110, end: 20100401
  2. ENBREL [Suspect]
     Dates: start: 20100501
  3. DOVOBET [Concomitant]
     Dates: start: 20080101
  4. XAMIOL                             /01643401/ [Concomitant]

REACTIONS (1)
  - ACUTE MYOCARDIAL INFARCTION [None]
